FAERS Safety Report 16078798 (Version 1)
Quarter: 2019Q1

REPORT INFORMATION
  Report Type: Spontaneous
  Country: US (occurrence: US)
  Receive Date: 20190315
  Receipt Date: 20190315
  Transmission Date: 20190418
  Serious: No
  Sender: FDA-Public Use
  Company Number: US-PERRIGO-18US003275

PATIENT
  Age: 60 Year
  Sex: Female
  Weight: 62.59 kg

DRUGS (4)
  1. VITAMIN D [Concomitant]
     Active Substance: CHOLECALCIFEROL
     Indication: SUPPLEMENTATION THERAPY
     Dosage: UNK
     Route: 065
  2. SCOPOLAMINE [Suspect]
     Active Substance: SCOPOLAMINE
     Indication: PROPHYLAXIS AGAINST MOTION SICKNESS
     Dosage: 1 MG, EVERY 72 HOURS (3 DOSES)
     Route: 062
     Dates: start: 20180310, end: 20180318
  3. PROBIOTICS NOS [Concomitant]
     Active Substance: PROBIOTICS NOS
     Indication: SUPPLEMENTATION THERAPY
     Dosage: UNK
     Route: 065
  4. CALCIUM [Concomitant]
     Active Substance: CALCIUM
     Indication: SUPPLEMENTATION THERAPY
     Dosage: UNK
     Route: 065

REACTIONS (5)
  - Nausea [Recovering/Resolving]
  - Somnolence [Recovering/Resolving]
  - Dizziness [Recovering/Resolving]
  - Withdrawal syndrome [Recovering/Resolving]
  - Motion sickness [Recovering/Resolving]

NARRATIVE: CASE EVENT DATE: 20180318
